FAERS Safety Report 6248637-1 (Version None)
Quarter: 2009Q2

REPORT INFORMATION
  Report Type: 
  Country: None (occurrence: None)
  Receive Date: 20090629
  Receipt Date: 20090625
  Transmission Date: 20091009
  Serious: Yes (Death)
  Sender: FDA-Public Use
  Company Number: DE-JNJFOC-20090608724

PATIENT
  Age: 75 Year
  Sex: Male

DRUGS (7)
  1. GALANTAMINE [Suspect]
     Indication: DRUG USE FOR UNKNOWN INDICATION
     Route: 065
  2. PIPAMPERONE [Suspect]
     Indication: DRUG USE FOR UNKNOWN INDICATION
     Route: 065
  3. CITALOPRAM [Concomitant]
     Route: 065
  4. AMLODIPINE [Concomitant]
     Route: 065
  5. MARCUMAR [Concomitant]
     Route: 065
  6. HYDROCHLOROTHIAZIDE [Concomitant]
     Route: 065
  7. CAPTOPRIL [Concomitant]
     Route: 065

REACTIONS (5)
  - ATRIAL FIBRILLATION [None]
  - CARDIAC ARREST [None]
  - CORONARY ARTERY DISEASE [None]
  - HYPOKALAEMIA [None]
  - SYNCOPE [None]
